FAERS Safety Report 9408610 (Version 2)
Quarter: 2013Q3

REPORT INFORMATION
  Report Type: Spontaneous
  Country: US (occurrence: US)
  Receive Date: 20130718
  Receipt Date: 20130827
  Transmission Date: 20140515
  Serious: No
  Sender: FDA-Public Use
  Company Number: US-009507513-1307USA008060

PATIENT
  Age: 54 Year
  Sex: Female

DRUGS (3)
  1. PEGINTRON [Suspect]
     Indication: HEPATITIS C
     Dosage: REDIPEN
     Dates: start: 20130712
  2. REBETOL [Suspect]
     Indication: HEPATITIS C
     Dosage: UNK
     Dates: start: 20130711
  3. TELAPREVIR [Suspect]
     Indication: HEPATITIS C
     Dosage: UNK
     Dates: start: 20130711

REACTIONS (17)
  - Pain [Unknown]
  - Headache [Unknown]
  - Decreased appetite [Unknown]
  - Feeling cold [Not Recovered/Not Resolved]
  - Feeling hot [Not Recovered/Not Resolved]
  - Hyperhidrosis [Not Recovered/Not Resolved]
  - Dizziness [Recovering/Resolving]
  - Depressed mood [Recovering/Resolving]
  - Crying [Recovering/Resolving]
  - Decreased appetite [Unknown]
  - Abdominal discomfort [Unknown]
  - Diarrhoea [Unknown]
  - Depression [Unknown]
  - Asthenia [Unknown]
  - Dizziness [Unknown]
  - Hyperhidrosis [Unknown]
  - Decreased appetite [Unknown]
